FAERS Safety Report 9021933 (Version 1)
Quarter: 2013Q1

REPORT INFORMATION
  Report Type: Spontaneous
  Country: US (occurrence: US)
  Receive Date: 20130118
  Receipt Date: 20130118
  Transmission Date: 20140127
  Serious: Yes (Disabling)
  Sender: FDA-Public Use
  Company Number: US-GENZYME-FABR-1002971

PATIENT
  Sex: Male

DRUGS (2)
  1. FABRAZYME [Suspect]
     Indication: FABRY^S DISEASE
     Dosage: UNK
     Route: 042
     Dates: start: 20111031, end: 201203
  2. FABRAZYME [Suspect]
     Dosage: 90 MG, Q2W
     Route: 042
     Dates: start: 20120628

REACTIONS (1)
  - Renal impairment [Not Recovered/Not Resolved]
